FAERS Safety Report 24350007 (Version 1)
Quarter: 2024Q3

REPORT INFORMATION
  Report Type: Report from Study
  Country: US (occurrence: US)
  Receive Date: 20240923
  Receipt Date: 20240923
  Transmission Date: 20241016
  Serious: No
  Sender: ROCHE
  Company Number: US-ROCHE-3487455

PATIENT
  Age: 47 Year
  Sex: Female

DRUGS (4)
  1. HERCEPTIN [Suspect]
     Active Substance: TRASTUZUMAB
     Indication: Breast cancer female
     Route: 065
  2. HERCEPTIN [Suspect]
     Active Substance: TRASTUZUMAB
     Indication: Oestrogen receptor assay positive
  3. PERJETA [Suspect]
     Active Substance: PERTUZUMAB
     Indication: Breast cancer female
     Route: 065
     Dates: start: 20230210
  4. PERJETA [Suspect]
     Active Substance: PERTUZUMAB
     Indication: Oestrogen receptor assay positive
     Route: 065
     Dates: start: 20230307

REACTIONS (2)
  - Off label use [Unknown]
  - No adverse event [Unknown]
